FAERS Safety Report 9327936 (Version 1)
Quarter: 2013Q2

REPORT INFORMATION
  Report Type: Spontaneous
  Country: US (occurrence: US)
  Receive Date: 20130604
  Receipt Date: 20130604
  Transmission Date: 20140414
  Serious: No
  Sender: FDA-Public Use
  Company Number: US-SANOFI-AVENTIS-2012SA028067

PATIENT
  Age: 67 Year
  Sex: Female
  Weight: 94.8 kg

DRUGS (6)
  1. LANTUS [Suspect]
     Indication: DIABETES MELLITUS
     Dosage: DOSE:41 UNIT(S)
     Route: 058
     Dates: start: 2006
  2. PLAVIX [Concomitant]
     Indication: PERIPHERAL ARTERIAL OCCLUSIVE DISEASE
     Dates: start: 201104
  3. LEVOTHYROXINE [Concomitant]
     Indication: THYROID DISORDER
  4. SPIRONOLACTONE [Concomitant]
     Indication: BLOOD PRESSURE
     Dates: start: 200902
  5. AMITRIPTYLINE [Concomitant]
     Indication: DIABETIC NEPHROPATHY
     Dates: start: 201003
  6. XALATAN [Concomitant]
     Indication: GLAUCOMA
     Dosage: 1 DROP EACH EYE
     Dates: start: 201003

REACTIONS (1)
  - Weight decreased [Unknown]
